FAERS Safety Report 25301650 (Version 1)
Quarter: 2025Q2

REPORT INFORMATION
  Report Type: Spontaneous
  Country: US (occurrence: US)
  Receive Date: 20250512
  Receipt Date: 20250512
  Transmission Date: 20250717
  Serious: No
  Sender: UCB
  Company Number: US-UCBSA-2024053114

PATIENT
  Sex: Female

DRUGS (1)
  1. CIMZIA [Suspect]
     Active Substance: CERTOLIZUMAB PEGOL
     Indication: Psoriasis
     Dosage: 400 MILLIGRAM, MONTHLY (QM)
     Route: 058
     Dates: start: 20240711

REACTIONS (4)
  - Eye swelling [Recovering/Resolving]
  - Dry eye [Recovering/Resolving]
  - Thyroid disorder [Not Recovered/Not Resolved]
  - Thyroid operation [Not Recovered/Not Resolved]
